FAERS Safety Report 20709224 (Version 1)
Quarter: 2022Q2

REPORT INFORMATION
  Report Type: Spontaneous
  Country: JP (occurrence: JP)
  Receive Date: 20220414
  Receipt Date: 20220414
  Transmission Date: 20220721
  Serious: Yes (Life-Threatening, Hospitalization, Other)
  Sender: FDA-Public Use
  Company Number: JP-PFIZER INC-202200512283

PATIENT
  Age: 46 Year
  Sex: Female

DRUGS (3)
  1. DOCETAXEL [Suspect]
     Active Substance: DOCETAXEL
     Indication: Oesophageal squamous cell carcinoma
     Dosage: 35 MG/M2, CYCLIC (ON DAYS 1 AND 15)
  2. CISPLATIN [Suspect]
     Active Substance: CISPLATIN
     Indication: Oesophageal squamous cell carcinoma
     Dosage: 40 MG/M2, CYCLIC (ON DAYS 1 AND 15)
  3. FLUOROURACIL [Suspect]
     Active Substance: FLUOROURACIL
     Indication: Oesophageal squamous cell carcinoma
     Dosage: 400 MG/M2, CYCLIC (ON DAYS 1-5 AND 15-19)

REACTIONS (4)
  - Peritonitis [Recovered/Resolved]
  - Oesophageal fistula [Recovered/Resolved]
  - Oesophageal perforation [Recovered/Resolved]
  - Necrotic lymphadenopathy [Recovering/Resolving]
